FAERS Safety Report 4733179-2 (Version None)
Quarter: 2005Q3

REPORT INFORMATION
  Report Type: 
  Country: None (occurrence: None)
  Receive Date: 20050725
  Receipt Date: 20040823
  Transmission Date: 20060218
  Serious: Yes (Death)
  Sender: FDA-Public Use
  Company Number: USA-2004-0016544

PATIENT
  Age: 30 Year
  Sex: Female
  Weight: 49 kg

DRUGS (5)
  1. MORPHINE SULFATE [Suspect]
  2. ACETAMINOPHEN [Suspect]
  3. OLANZAPINE [Suspect]
  4. DIPHENHYDRAMINE HCL [Suspect]
  5. CODEINE SUL TAB [Suspect]

REACTIONS (1)
  - OVERDOSE [None]
